FAERS Safety Report 6482677-2 (Version None)
Quarter: 2009Q4

REPORT INFORMATION
  Report Type: 
  Country: None (occurrence: None)
  Receive Date: 20091209
  Receipt Date: 20091201
  Transmission Date: 20100525
  Serious: Yes (Hospitalization, Other)
  Sender: FDA-Public Use
  Company Number: US-BAYER-200918932NA

PATIENT
  Age: 22 Year
  Sex: Female
  Weight: 78 kg

DRUGS (2)
  1. MIRENA [Suspect]
     Indication: CONTRACEPTION
     Dosage: CONTINUOUS
     Route: 015
     Dates: start: 20071011, end: 20080212
  2. VITAMIN TAB [Concomitant]
     Indication: PREGNANCY
     Dosage: DAILY
     Route: 048

REACTIONS (2)
  - MEDICAL DEVICE COMPLICATION [None]
  - UTERINE PERFORATION [None]
